FAERS Safety Report 22052904 (Version 1)
Quarter: 2023Q1

REPORT INFORMATION
  Report Type: Spontaneous
  Country: FR (occurrence: None)
  Receive Date: 20230302
  Receipt Date: 20230302
  Transmission Date: 20230418
  Serious: Yes (Other)
  Sender: FDA-Public Use
  Company Number: 2023A045142

PATIENT
  Age: 47 Year
  Sex: Female

DRUGS (3)
  1. QUETIAPINE [Suspect]
     Active Substance: QUETIAPINE
     Dosage: 800 MG/J 2 MONTHS
     Route: 048
     Dates: start: 202212
  2. LOXAPINE [Suspect]
     Active Substance: LOXAPINE
     Dosage: 100 MG/J
     Route: 048
     Dates: start: 202212
  3. MORPHINE SULFATE [Suspect]
     Active Substance: MORPHINE SULFATE
     Dosage: 30 MG/J
     Route: 048
     Dates: start: 2017

REACTIONS (1)
  - Drug use disorder [Not Recovered/Not Resolved]
